FAERS Safety Report 16098138 (Version 1)
Quarter: 2019Q1

REPORT INFORMATION
  Report Type: Spontaneous
  Country: CA (occurrence: CA)
  Receive Date: 20190320
  Receipt Date: 20190320
  Transmission Date: 20190418
  Serious: Yes (Other)
  Sender: FDA-Public Use
  Company Number: CA-BAXTER-2019BAX005306

PATIENT
  Sex: Female

DRUGS (3)
  1. VENOFER [Suspect]
     Active Substance: IRON SUCROSE
     Dosage: DOSAGE FORM: LIQUID INTRAVENOUS
     Route: 041
  2. VENOFER [Suspect]
     Active Substance: IRON SUCROSE
     Indication: IRON DEFICIENCY ANAEMIA
     Dosage: DOSAGE FORM: LIQUID INTRAVENOUS
     Route: 042
  3. 0.9% SODIUM CHLORIDE INJECTION [Suspect]
     Active Substance: SODIUM CHLORIDE
     Indication: IRON DEFICIENCY ANAEMIA
     Dosage: DOSAGE FORM: NOT SPECIFIED
     Route: 041

REACTIONS (2)
  - Back pain [Unknown]
  - Hypotension [Unknown]
